FAERS Safety Report 10245282 (Version 4)
Quarter: 2014Q4

REPORT INFORMATION
  Report Type: Report from Study
  Country: JP (occurrence: JP)
  Receive Date: 20140618
  Receipt Date: 20141009
  Transmission Date: 20150528
  Serious: Yes (Death, Life-Threatening, Hospitalization, Other)
  Sender: FDA-Public Use
  Company Number: JP-ROCHE-1417958

PATIENT
  Age: 70 Year
  Sex: Male
  Weight: 68 kg

DRUGS (13)
  1. SOVRIAD [Suspect]
     Active Substance: SIMEPREVIR
     Indication: CHRONIC HEPATITIS C
     Route: 048
     Dates: start: 20140123
  2. EPADEL [Concomitant]
     Active Substance: ICOSAPENT
     Route: 048
  3. ANTEBATE [Concomitant]
     Active Substance: BETAMETHASONE DIPROPIONATE
     Dosage: 5 G PER CONTAINER
     Route: 065
  4. PEGINTERFERON ALFA-2A [Suspect]
     Active Substance: PEGINTERFERON ALFA-2A
     Indication: CHRONIC HEPATITIS C
     Route: 058
     Dates: start: 20140123
  5. ALLELOCK [Concomitant]
     Active Substance: OLOPATADINE HYDROCHLORIDE
     Route: 048
     Dates: start: 20140220
  6. DEXALTIN [Concomitant]
     Active Substance: DEXAMETHASONE
     Route: 061
  7. HIRUDOID (JAPAN) [Concomitant]
     Route: 065
     Dates: start: 20140327
  8. ALLEGRA [Concomitant]
     Active Substance: FEXOFENADINE HYDROCHLORIDE
     Route: 065
     Dates: start: 20140417
  9. RIBAVIRIN. [Suspect]
     Active Substance: RIBAVIRIN
     Indication: CHRONIC HEPATITIS C
     Route: 048
     Dates: start: 20140123
  10. SOVRIAD [Suspect]
     Active Substance: SIMEPREVIR
     Route: 048
     Dates: start: 20140417, end: 20140501
  11. ANTEBATE [Concomitant]
     Active Substance: BETAMETHASONE DIPROPIONATE
     Route: 065
     Dates: start: 20140327
  12. HIRUDOID (JAPAN) [Concomitant]
     Dosage: 25 G PER CONTAINER
     Route: 065
  13. PURSENNID [Concomitant]
     Active Substance: SENNOSIDES A AND B
     Route: 048

REACTIONS (11)
  - Dry skin [Recovering/Resolving]
  - Platelet count decreased [Recovering/Resolving]
  - Brain stem infarction [Fatal]
  - Respiratory failure [Fatal]
  - Depressed level of consciousness [Unknown]
  - Atrial fibrillation [Unknown]
  - Rash [Unknown]
  - Cardiac failure [Fatal]
  - Infective spondylitis [Not Recovered/Not Resolved]
  - Disseminated intravascular coagulation [Not Recovered/Not Resolved]
  - Pruritus [Unknown]

NARRATIVE: CASE EVENT DATE: 20140130
